FAERS Safety Report 13646178 (Version 2)
Quarter: 2017Q2

REPORT INFORMATION
  Report Type: Report from Study
  Country: None (occurrence: BR)
  Receive Date: 20170613
  Receipt Date: 20170615
  Transmission Date: 20170830
  Serious: Yes (Death, Other)
  Sender: FDA-Public Use
  Company Number: BR-ABBVIE-17K-020-2003523-00

PATIENT
  Age: 53 Year
  Sex: Female

DRUGS (1)
  1. HUMIRA [Suspect]
     Active Substance: ADALIMUMAB
     Indication: RHEUMATOID ARTHRITIS
     Route: 058
     Dates: start: 20160603, end: 201705

REACTIONS (17)
  - Drug-induced liver injury [Fatal]
  - Hepatic failure [Fatal]
  - Renal failure [Not Recovered/Not Resolved]
  - Migraine [Recovering/Resolving]
  - Nausea [Recovering/Resolving]
  - Pneumonia [Fatal]
  - Asthenia [Not Recovered/Not Resolved]
  - Hepatic cirrhosis [Fatal]
  - Rheumatoid arthritis [Fatal]
  - Abdominal pain [Not Recovered/Not Resolved]
  - Coma [Not Recovered/Not Resolved]
  - Hypophagia [Unknown]
  - Diabetes mellitus [Not Recovered/Not Resolved]
  - Abdominal distension [Not Recovered/Not Resolved]
  - Nausea [Not Recovered/Not Resolved]
  - Rheumatoid lung [Fatal]
  - Migraine [Not Recovered/Not Resolved]

NARRATIVE: CASE EVENT DATE: 201612
